FAERS Safety Report 5984082-1 (Version None)
Quarter: 2008Q4

REPORT INFORMATION
  Report Type: 
  Country: None (occurrence: None)
  Receive Date: 20081208
  Receipt Date: 20081128
  Transmission Date: 20090506
  Serious: Yes (Hospitalization)
  Sender: FDA-Public Use
  Company Number: MX-ELI_LILLY_AND_COMPANY-MX200812000012

PATIENT
  Age: 59 Year
  Sex: Female
  Weight: 66 kg

DRUGS (6)
  1. FORTEO [Suspect]
     Indication: OSTEOPENIA
     Dosage: 20 UG, DAILY (1/D)
     Route: 058
     Dates: start: 20080801, end: 20081108
  2. FORTEO [Suspect]
     Dosage: 20 UG, DAILY (1/D)
     Route: 058
     Dates: start: 20081125
  3. ESTRADIOL [Concomitant]
     Dosage: 1 MG, DAILY (1/D)
     Route: 065
  4. TENORMIN [Concomitant]
     Indication: BLOOD PRESSURE
     Dosage: 50 MG, EACH MORNING
     Route: 065
  5. OMEPRAZOLE [Concomitant]
     Indication: PROPHYLAXIS
     Dosage: UNK, UNKNOWN
     Route: 065
  6. CALCIUM [Concomitant]
     Dosage: UNK UNK, 2/D
     Route: 065

REACTIONS (3)
  - MUSCULAR WEAKNESS [None]
  - NERVE ROOT COMPRESSION [None]
  - SPINAL DISORDER [None]
